FAERS Safety Report 22819389 (Version 3)
Quarter: 2024Q2

REPORT INFORMATION
  Report Type: Report from Study
  Country: GB (occurrence: GB)
  Receive Date: 20230814
  Receipt Date: 20240412
  Transmission Date: 20240716
  Serious: Yes (Death, Hospitalization)
  Sender: FDA-Public Use
  Company Number: GB-ABBVIE-5364358

PATIENT
  Age: 47 Year
  Sex: Male
  Weight: 83 kg

DRUGS (2)
  1. SKYRIZI [Suspect]
     Active Substance: RISANKIZUMAB-RZAA
     Indication: Psoriasis
     Route: 058
     Dates: start: 20200501
  2. ESOMEPRAZOLE [Concomitant]
     Active Substance: ESOMEPRAZOLE
     Indication: Product used for unknown indication
     Dates: start: 20200303

REACTIONS (6)
  - Benign neoplasm [Fatal]
  - Procedural pain [Unknown]
  - Abdominal distension [Not Recovered/Not Resolved]
  - Cardiac arrest [Fatal]
  - Pulmonary embolism [Fatal]
  - Deep vein thrombosis [Fatal]

NARRATIVE: CASE EVENT DATE: 20220801
